FAERS Safety Report 12460022 (Version 3)
Quarter: 2016Q3

REPORT INFORMATION
  Report Type: Spontaneous
  Country: US (occurrence: US)
  Receive Date: 20160613
  Receipt Date: 20160930
  Transmission Date: 20161109
  Serious: No
  Sender: FDA-Public Use
  Company Number: US-PFIZER INC-2016276707

PATIENT
  Age: 61 Year
  Sex: Male
  Weight: 96.15 kg

DRUGS (1)
  1. SUTENT [Suspect]
     Active Substance: SUNITINIB MALATE
     Indication: RENAL CANCER
     Dosage: 50 MG, DAY 1-DAY 28, EVERY 42 DAYS
     Route: 048
     Dates: start: 20160518

REACTIONS (7)
  - Decreased appetite [Unknown]
  - Renal cancer [Unknown]
  - Arthralgia [Unknown]
  - Fatigue [Unknown]
  - Disease progression [Unknown]
  - Back pain [Unknown]
  - Nausea [Unknown]
